FAERS Safety Report 17770906 (Version 1)
Quarter: 2020Q2

REPORT INFORMATION
  Report Type: Spontaneous
  Country: FR (occurrence: FR)
  Receive Date: 20200512
  Receipt Date: 20200512
  Transmission Date: 20200714
  Serious: Yes (Hospitalization)
  Sender: FDA-Public Use
  Company Number: FR-PFIZER INC-2020187393

PATIENT
  Age: 16 Year
  Sex: Male

DRUGS (2)
  1. VALIUM [Suspect]
     Active Substance: DIAZEPAM
     Dosage: 80 MG, 1X/DAY
     Route: 048
  2. LYRICA [Suspect]
     Active Substance: PREGABALIN
     Dosage: 3000 MG, 1X/DAY
     Route: 048

REACTIONS (4)
  - Prescription drug used without a prescription [Unknown]
  - Intentional overdose [Unknown]
  - Delusion [Not Recovered/Not Resolved]
  - Drug abuse [Not Recovered/Not Resolved]
